FAERS Safety Report 7885082-7 (Version None)
Quarter: 2011Q4

REPORT INFORMATION
  Report Type: 
  Country: None (occurrence: None)
  Receive Date: 20111102
  Receipt Date: 20100913
  Transmission Date: 20120403
  Serious: No
  Sender: FDA-Public Use
  Company Number: US-BAYER-201033535NA

PATIENT
  Age: 33 Year
  Sex: Female
  Weight: 56.818 kg

DRUGS (1)
  1. AVELOX [Suspect]
     Indication: SINUSITIS
     Dosage: 400 MG, QD
     Route: 048
     Dates: start: 20100901

REACTIONS (2)
  - VISION BLURRED [None]
  - CORNEAL OEDEMA [None]
